FAERS Safety Report 18585118 (Version 2)
Quarter: 2021Q1

REPORT INFORMATION
  Report Type: Report from Study
  Country: US (occurrence: US)
  Receive Date: 20201207
  Receipt Date: 20210111
  Transmission Date: 20210419
  Serious: Yes (Disabling, Other)
  Sender: FDA-Public Use
  Company Number: US-REGENERON PHARMACEUTICALS, INC.-2020-77148

PATIENT

DRUGS (4)
  1. EYLEA [Suspect]
     Active Substance: AFLIBERCEPT
     Indication: DIABETIC RETINAL OEDEMA
     Dosage: INJECTION IN THE RIGHT EYE,  EVERY 3 MONTHS
     Route: 031
     Dates: start: 20200620, end: 20200620
  2. EYLEA [Suspect]
     Active Substance: AFLIBERCEPT
     Indication: DIABETIC RETINOPATHY
     Dosage: FIRST INJECTION IN THE LEFT EYE, EVERY 3 MONTHS
     Route: 031
     Dates: start: 20200612, end: 20200612
  3. EYLEA [Suspect]
     Active Substance: AFLIBERCEPT
     Dosage: LEFT EYE,  EVERY 3 MONTHS
     Route: 031
     Dates: start: 20200915, end: 20200916
  4. EYLEA [Suspect]
     Active Substance: AFLIBERCEPT
     Dosage: RIGHT EYE,  EVERY 3 MONTHS
     Route: 031
     Dates: start: 20200824, end: 20200824

REACTIONS (5)
  - Off label use [Unknown]
  - Visual acuity reduced [Unknown]
  - Blindness unilateral [Not Recovered/Not Resolved]
  - Eye infection intraocular [Not Recovered/Not Resolved]
  - Retinal artery occlusion [Unknown]

NARRATIVE: CASE EVENT DATE: 20200915
